FAERS Safety Report 25795555 (Version 1)
Quarter: 2025Q3

REPORT INFORMATION
  Report Type: Spontaneous
  Country: US (occurrence: None)
  Receive Date: 20250911
  Receipt Date: 20250911
  Transmission Date: 20251020
  Serious: Yes (Death)
  Sender: FDA-CTU
  Company Number: None

PATIENT
  Age: 47 Year
  Sex: Female

DRUGS (11)
  1. MEKINIST [Suspect]
     Active Substance: TRAMETINIB DIMETHYL SULFOXIDE
     Indication: Ovarian cancer
     Dosage: FREQUENCY : DAILY;?
     Route: 048
     Dates: start: 20250716
  2. ALPRAZOLAM TAB 0.25MG [Concomitant]
  3. BUDESONIDE SUS 0.5MG/2 [Concomitant]
  4. CODEINE/GG SOL 10-100/5 [Concomitant]
  5. DEXAMETHASON TAB 2MG [Concomitant]
  6. FUROSEMIDE [Concomitant]
     Active Substance: FUROSEMIDE
  7. GABAPENTIN [Concomitant]
     Active Substance: GABAPENTIN
  8. HYDROCO/APAP TAB 7.5-325 [Concomitant]
  9. VERMECTIN TAB3MG [Concomitant]
  10. LETROZOLE TAB 2.SMG [Concomitant]
  11. LIDO/PRILOCN CRE 2.5-2.5% [Concomitant]

REACTIONS (4)
  - Pulmonary thrombosis [None]
  - Thrombosis [None]
  - Deep vein thrombosis [None]
  - Pulmonary embolism [None]

NARRATIVE: CASE EVENT DATE: 20250825
